FAERS Safety Report 14177371 (Version 1)
Quarter: 2017Q4

REPORT INFORMATION
  Report Type: Spontaneous
  Country: BR (occurrence: BR)
  Receive Date: 20171110
  Receipt Date: 20171110
  Transmission Date: 20180321
  Serious: Yes (Death)
  Sender: FDA-Public Use
  Company Number: BR-GLAXOSMITHKLINE-BR2017GSK102586

PATIENT
  Sex: Male

DRUGS (1)
  1. BACTROBAN [Suspect]
     Active Substance: MUPIROCIN\MUPIROCIN CALCIUM
     Indication: BACTERIAL INFECTION
     Dosage: 1 DF, TID
     Route: 061
     Dates: start: 20170619

REACTIONS (6)
  - Nail disorder [Unknown]
  - Wound [Fatal]
  - Skin ulcer [Unknown]
  - Ill-defined disorder [Unknown]
  - Crying [Unknown]
  - Pruritus [Unknown]

NARRATIVE: CASE EVENT DATE: 20170619
